FAERS Safety Report 9293126 (Version 1)
Quarter: 2013Q2

REPORT INFORMATION
  Report Type: Spontaneous
  Country: FR (occurrence: None)
  Receive Date: 20130514
  Receipt Date: 20130514
  Transmission Date: 20140414
  Serious: Yes (Death, Other)
  Sender: FDA-Public Use
  Company Number: FK201301441

PATIENT
  Age: 95 Year
  Sex: Female

DRUGS (6)
  1. HEPARIN [Suspect]
     Indication: THROMBOSIS PROPHYLAXIS
  2. BISOPROLOL (BISOPROL) [Concomitant]
  3. AMIODARONE (AMIODARONE) [Concomitant]
  4. RAMIPRIL (RAMIPRIL) [Concomitant]
  5. FUROSEMIDE (FUROSEMIDE) [Concomitant]
  6. MORPHINE [Concomitant]

REACTIONS (5)
  - Heparin-induced thrombocytopenia [None]
  - Sudden death [None]
  - Azotaemia [None]
  - Hypoxia [None]
  - Metabolic alkalosis [None]
